FAERS Safety Report 8011861-1 (Version None)
Quarter: 2011Q4

REPORT INFORMATION
  Report Type: 
  Country: None (occurrence: None)
  Receive Date: 20111123
  Receipt Date: 20111027
  Transmission Date: 20120403
  Serious: No
  Sender: FDA-Public Use
  Company Number: 337218

PATIENT
  Sex: Male

DRUGS (1)
  1. VICTOZA [Suspect]
     Indication: TYPE 2 DIABETES MELLITUS
     Dosage: 1.8 MG, QD, SUBCUTANEOUS
     Route: 058

REACTIONS (5)
  - NAUSEA [None]
  - INJECTION SITE PAIN [None]
  - GLYCOSYLATED HAEMOGLOBIN DECREASED [None]
  - WEIGHT DECREASED [None]
  - INJECTION SITE HAEMATOMA [None]
